FAERS Safety Report 16846828 (Version 1)
Quarter: 2019Q3

REPORT INFORMATION
  Report Type: Report from Study
  Country: None (occurrence: SE)
  Receive Date: 20190924
  Receipt Date: 20190924
  Transmission Date: 20191005
  Serious: Yes (Other)
  Sender: FDA-Public Use
  Company Number: SE-BIOVITRUM-2015SE0595

PATIENT
  Age: 12 Year
  Sex: Female

DRUGS (2)
  1. ORFADIN [Suspect]
     Active Substance: NITISINONE
     Indication: TYROSINAEMIA
     Route: 065
  2. ORFADIN [Suspect]
     Active Substance: NITISINONE
     Dosage: 0.54 MG/KG
     Dates: start: 20160822

REACTIONS (3)
  - Amino acid level increased [Not Recovered/Not Resolved]
  - Cognitive disorder [Unknown]
  - Succinylacetone increased [Unknown]

NARRATIVE: CASE EVENT DATE: 20140616
